FAERS Safety Report 14789453 (Version 1)
Quarter: 2018Q2

REPORT INFORMATION
  Report Type: Spontaneous
  Country: US (occurrence: US)
  Receive Date: 20180423
  Receipt Date: 20180423
  Transmission Date: 20180711
  Serious: No
  Sender: FDA-Public Use
  Company Number: US-TEVA-2018-US-867186

PATIENT
  Age: 54 Year
  Sex: Female

DRUGS (1)
  1. CINQAIR [Suspect]
     Active Substance: RESLIZUMAB
     Dosage: 100 MG / 10 ML
     Route: 065
     Dates: start: 20180222

REACTIONS (6)
  - Productive cough [Unknown]
  - Wheezing [Unknown]
  - Drug ineffective [Unknown]
  - Chest discomfort [Unknown]
  - Asthma [Unknown]
  - Sputum discoloured [Unknown]

NARRATIVE: CASE EVENT DATE: 20180223
